FAERS Safety Report 9399274 (Version 1)
Quarter: 2013Q3

REPORT INFORMATION
  Report Type: Spontaneous
  Country: US (occurrence: None)
  Receive Date: 20130709
  Receipt Date: 20130709
  Transmission Date: 20140515
  Serious: Yes (Other)
  Sender: FDA-Public Use
  Company Number: 2013AP006408

PATIENT
  Age: 55 Year
  Sex: Female

DRUGS (1)
  1. CARBAMAZEPINE TABLETS USP 200 MG [Suspect]
     Indication: CONVULSION

REACTIONS (7)
  - Pemphigoid [None]
  - Eosinophilia [None]
  - Leukocytosis [None]
  - Blood immunoglobulin E increased [None]
  - Rash [None]
  - Urinary tract infection [None]
  - Epilepsy [None]
